FAERS Safety Report 9052839 (Version 10)
Quarter: 2014Q2

REPORT INFORMATION
  Report Type: Spontaneous
  Country: ES (occurrence: ES)
  Receive Date: 20130207
  Receipt Date: 20140606
  Transmission Date: 20141212
  Serious: Yes (Death, Hospitalization)
  Sender: FDA-Public Use
  Company Number: ES-CELGENEUS-144-21880-12111979

PATIENT
  Age: 80 Year
  Sex: Male

DRUGS (15)
  1. REVLIMID [Suspect]
     Indication: PLASMA CELL MYELOMA
     Dosage: 25 MILLIGRAM
     Route: 048
     Dates: start: 20120620, end: 20120924
  2. DEXAMETHAZONE [Suspect]
     Indication: PLASMA CELL MYELOMA
     Dosage: 40 MILLIGRAM
     Route: 048
     Dates: start: 20120620, end: 20120925
  3. DEXAMETHAZONE [Suspect]
     Route: 065
     Dates: start: 20121114, end: 20121126
  4. DEXAMETHAZONE [Suspect]
     Route: 065
     Dates: start: 20121208, end: 20121210
  5. EMCONCOR [Concomitant]
     Indication: PRODUCT USED FOR UNKNOWN INDICATION
     Route: 065
     Dates: start: 20121201, end: 20121212
  6. LEXATIN [Concomitant]
     Indication: PRODUCT USED FOR UNKNOWN INDICATION
     Route: 065
  7. ZYLORIC [Concomitant]
     Indication: PRODUCT USED FOR UNKNOWN INDICATION
     Route: 065
  8. MAGNESIUM [Concomitant]
     Indication: PRODUCT USED FOR UNKNOWN INDICATION
     Route: 065
     Dates: start: 20121112, end: 20121112
  9. MAGNESIUM [Concomitant]
     Route: 065
     Dates: start: 20121122, end: 20121123
  10. FILGRASTIM [Concomitant]
     Indication: PRODUCT USED FOR UNKNOWN INDICATION
     Route: 065
     Dates: start: 20121114, end: 20121126
  11. FILGRASTIM [Concomitant]
     Route: 065
     Dates: start: 20121114, end: 20121124
  12. FILGRASTIM [Concomitant]
     Route: 065
     Dates: start: 20121208, end: 20121208
  13. FILGRASTIM [Concomitant]
     Route: 065
     Dates: start: 20121022, end: 20121025
  14. FILGRASTIM [Concomitant]
     Route: 065
     Dates: start: 20120930, end: 20121011
  15. HEPARINE [Concomitant]
     Indication: PRODUCT USED FOR UNKNOWN INDICATION
     Route: 065
     Dates: start: 20120619, end: 20121016

REACTIONS (5)
  - Respiratory tract infection [Recovered/Resolved]
  - Septic shock [Fatal]
  - Septic shock [Recovered/Resolved]
  - Septic shock [Recovered/Resolved]
  - Urethral haemorrhage [Recovered/Resolved]
